FAERS Safety Report 12393451 (Version 1)
Quarter: 2016Q2

REPORT INFORMATION
  Report Type: Spontaneous
  Country: US (occurrence: US)
  Receive Date: 20160523
  Receipt Date: 20160523
  Transmission Date: 20160815
  Serious: Yes (Hospitalization)
  Sender: FDA-Public Use
  Company Number: US-GLAXOSMITHKLINE-US2016071924

PATIENT
  Age: 43 Year
  Sex: Female

DRUGS (7)
  1. BELSOMRA [Concomitant]
     Active Substance: SUVOREXANT
  2. BENLYSTA [Suspect]
     Active Substance: BELIMUMAB
     Indication: SYSTEMIC LUPUS ERYTHEMATOSUS
  3. HYDROCODONE [Concomitant]
     Active Substance: HYDROCODONE
  4. SAVELLA [Concomitant]
     Active Substance: MILNACIPRAN HYDROCHLORIDE
  5. DILAUDID [Concomitant]
     Active Substance: HYDROMORPHONE HYDROCHLORIDE
  6. PLAQUENIL [Concomitant]
     Active Substance: HYDROXYCHLOROQUINE SULFATE
  7. XANAX [Concomitant]
     Active Substance: ALPRAZOLAM

REACTIONS (3)
  - Ankle operation [Recovering/Resolving]
  - Drug dose omission [Recovered/Resolved]
  - Fibula fracture [Recovering/Resolving]

NARRATIVE: CASE EVENT DATE: 201512
